FAERS Safety Report 15777058 (Version 3)
Quarter: 2019Q3

REPORT INFORMATION
  Report Type: Spontaneous
  Country: US (occurrence: US)
  Receive Date: 20181231
  Receipt Date: 20190702
  Transmission Date: 20191004
  Serious: Yes (Death, Hospitalization, Other)
  Sender: FDA-Public Use
  Company Number: US-GILEAD-2018-0382238

PATIENT
  Age: 76 Year
  Sex: Female
  Weight: 110 kg

DRUGS (8)
  1. CYTOXAN [Concomitant]
     Active Substance: CYCLOPHOSPHAMIDE
     Indication: BONE MARROW CONDITIONING REGIMEN
     Route: 065
  2. YESCARTA [Suspect]
     Active Substance: AXICABTAGENE CILOLEUCEL
     Indication: DIFFUSE LARGE B-CELL LYMPHOMA
     Dosage: UNK, SINGLE
     Route: 042
     Dates: start: 20181121, end: 20181121
  3. DECADRON [Suspect]
     Active Substance: DEXAMETHASONE
     Indication: NEUROTOXICITY
     Dosage: 4 MG, Q6H
     Route: 042
     Dates: start: 20181130, end: 20181202
  4. KEPPRA [Concomitant]
     Active Substance: LEVETIRACETAM
  5. ALLOPURINOL. [Concomitant]
     Active Substance: ALLOPURINOL
  6. DECADRON [Suspect]
     Active Substance: DEXAMETHASONE
     Indication: CENTRAL NERVOUS SYSTEM LESION
     Dosage: 4 MG
     Route: 048
     Dates: start: 20181202, end: 20181205
  7. FLUCONAZOL [Suspect]
     Active Substance: FLUCONAZOLE
     Indication: PROPHYLAXIS
     Dosage: 100 MG
     Route: 042
     Dates: start: 20181125, end: 20181212
  8. FLUDARABINE [Concomitant]
     Active Substance: FLUDARABINE PHOSPHATE
     Indication: BONE MARROW CONDITIONING REGIMEN
     Dosage: UNK
     Route: 065
     Dates: start: 20181114, end: 20181116

REACTIONS (4)
  - Death [Fatal]
  - Central nervous system lesion [Unknown]
  - Cytokine release syndrome [Recovered/Resolved]
  - Neurotoxicity [Recovered/Resolved]

NARRATIVE: CASE EVENT DATE: 20181122
